FAERS Safety Report 23610222 (Version 2)
Quarter: 2024Q2

REPORT INFORMATION
  Report Type: Spontaneous
  Country: US (occurrence: US)
  Receive Date: 20240308
  Receipt Date: 20240401
  Transmission Date: 20240716
  Serious: No
  Sender: FDA-Public Use
  Company Number: US-SA-SAC20240301000867

PATIENT
  Age: 20 Year
  Sex: Female

DRUGS (2)
  1. DUPIXENT [Suspect]
     Active Substance: DUPILUMAB
     Indication: Asthma
     Dosage: 600 MG, 1X
     Route: 058
     Dates: start: 202401, end: 202401
  2. DUPIXENT [Suspect]
     Active Substance: DUPILUMAB
     Indication: Dermatitis atopic
     Dosage: 300 MG, QOW
     Route: 058
     Dates: start: 202402, end: 202402

REACTIONS (9)
  - Weight increased [Unknown]
  - Acne [Unknown]
  - Oedema peripheral [Unknown]
  - Skin discolouration [Unknown]
  - Swelling face [Unknown]
  - Peripheral swelling [Unknown]
  - Joint swelling [Unknown]
  - Eczema [Unknown]
  - Face oedema [Unknown]

NARRATIVE: CASE EVENT DATE: 20240101
